FAERS Safety Report 5251309-3 (Version None)
Quarter: 2007Q1

REPORT INFORMATION
  Report Type: 
  Country: None (occurrence: None)
  Receive Date: 20070228
  Receipt Date: 20060712
  Transmission Date: 20070707
  Serious: No
  Sender: FDA-Public Use
  Company Number: US-GLAXOSMITHKLINE-A0611466A

PATIENT
  Age: 46 Year
  Sex: Female

DRUGS (2)
  1. LAMICTAL [Suspect]
     Indication: DEPRESSION
     Dosage: 200MCG PER DAY
     Route: 048
     Dates: start: 20060301
  2. CYMBALTA [Concomitant]
     Dosage: 120MG PER DAY
     Route: 048

REACTIONS (2)
  - AXILLARY PAIN [None]
  - PYREXIA [None]
